FAERS Safety Report 14098584 (Version 1)
Quarter: 2017Q4

REPORT INFORMATION
  Report Type: Report from Study
  Country: US (occurrence: US)
  Receive Date: 20171017
  Receipt Date: 20171017
  Transmission Date: 20180321
  Serious: Yes (Hospitalization)
  Sender: FDA-Public Use
  Company Number: US-ACTELION-A-NJ2017-151348

PATIENT
  Age: 82 Year
  Sex: Female
  Weight: 65.76 kg

DRUGS (2)
  1. WARFARIN [Concomitant]
     Active Substance: WARFARIN
  2. OPSUMIT [Suspect]
     Active Substance: MACITENTAN
     Indication: PULMONARY ARTERIAL HYPERTENSION
     Dosage: 10 MG, QD
     Route: 048

REACTIONS (6)
  - Heart rate irregular [Unknown]
  - Chest pain [Recovered/Resolved]
  - Pain in extremity [Unknown]
  - Body temperature increased [Recovered/Resolved]
  - Musculoskeletal disorder [Unknown]
  - Fluid retention [Unknown]
